FAERS Safety Report 10401650 (Version 1)
Quarter: 2014Q3

REPORT INFORMATION
  Report Type: Spontaneous
  Country: US (occurrence: None)
  Receive Date: 20140812
  Receipt Date: 20140812
  Transmission Date: 20150326
  Serious: Yes (Hospitalization)
  Sender: FDA-Public Use
  Company Number: AUR-APL-2014-08311

PATIENT
  Age: 78 Year
  Sex: Male

DRUGS (6)
  1. METOPROLOL XL [Concomitant]
     Active Substance: METOPROLOL
  2. WARFARIN [Concomitant]
     Active Substance: WARFARIN
  3. DONEPEZIL 10 MG (DONEPEZIL) UNKNOWN, 10MG [Suspect]
     Active Substance: DONEPEZIL
     Indication: PRODUCT USED FOR UNKNOWN INDICATION
  4. RIVASTIGMINE (RIVASTIGMINE) PATCH [Suspect]
     Active Substance: RIVASTIGMINE
     Indication: PRODUCT USED FOR UNKNOWN INDICATION
  5. CARBIDOPA LEVODOPA [Concomitant]
     Active Substance: CARBIDOPA\LEVODOPA
  6. TRAZODONE [Concomitant]
     Active Substance: TRAZODONE HYDROCHLORIDE

REACTIONS (11)
  - Miosis [None]
  - Confusional state [None]
  - Sinus bradycardia [None]
  - Blood cholinesterase decreased [None]
  - Cholinesterase inhibition [None]
  - Mental status changes [None]
  - Incoherent [None]
  - Encephalopathy [None]
  - Lethargy [None]
  - Toxicity to various agents [None]
  - Slow response to stimuli [None]
